FAERS Safety Report 20430763 (Version 1)
Quarter: 2022Q1

REPORT INFORMATION
  Report Type: Report from Study
  Country: FR (occurrence: FR)
  Receive Date: 20220204
  Receipt Date: 20220204
  Transmission Date: 20220423
  Serious: Yes (Hospitalization)
  Sender: FDA-Public Use
  Company Number: FR-SERVIER-S21004533

PATIENT

DRUGS (8)
  1. PEGASPARGASE [Suspect]
     Active Substance: PEGASPARGASE
     Indication: Acute lymphocytic leukaemia
     Dosage: 3000 IU, QD, D15, D43
     Route: 042
     Dates: start: 20200318, end: 20200420
  2. TN UNSPECIFIED [Concomitant]
     Indication: Acute lymphocytic leukaemia
     Dosage: 72 MG, D1 TO D14, D29 TO D42
     Route: 048
     Dates: start: 20200303, end: 20200419
  3. TN UNSPECIFIED [Concomitant]
     Indication: Acute lymphocytic leukaemia
     Dosage: 1200 MG, D1, D29
     Route: 042
     Dates: start: 20200303, end: 20200406
  4. TN UNSPECIFIED [Concomitant]
     Indication: Acute lymphocytic leukaemia
     Dosage: 1.8 MG, D15, D22, D43, D50
     Route: 042
     Dates: start: 20200318, end: 20200427
  5. TN UNSPECIFIED [Concomitant]
     Indication: Acute lymphocytic leukaemia
     Dosage: 90 MG, D3 TO D6, D10 TO D13
     Route: 042
     Dates: start: 20200305, end: 20200418
  6. TN UNSPECIFIED [Concomitant]
     Dosage: 30 MG, D3, D31
     Route: 037
     Dates: start: 20200305, end: 20200408
  7. TN UNSPECIFIED [Concomitant]
     Indication: Acute lymphocytic leukaemia
     Dosage: 15 MG, D3, D31
     Route: 037
     Dates: start: 20200305, end: 20200408
  8. TN UNSPECIFIED [Concomitant]
     Indication: Acute lymphocytic leukaemia
     Dosage: 15 MG, D3, D31
     Route: 037
     Dates: start: 20200305, end: 20200408

REACTIONS (1)
  - Subcutaneous abscess [Recovered/Resolved]

NARRATIVE: CASE EVENT DATE: 20200310
